FAERS Safety Report 9209516 (Version 1)
Quarter: 2013Q1

REPORT INFORMATION
  Report Type: Spontaneous
  Country: US (occurrence: None)
  Receive Date: 20120809
  Receipt Date: 20120809
  Transmission Date: 20140127
  Serious: Yes (Other)
  Sender: FDA-Public Use
  Company Number: 2012US005314

PATIENT
  Age: 83 Year
  Sex: Male
  Weight: 81 kg

DRUGS (3)
  1. VESICARE (SOLIFENACIN) TABLET [Suspect]
     Indication: HYPERTONIC BLADDER
     Route: 048
     Dates: start: 20120606, end: 20120606
  2. ALFUZOSIN(ALFUZOSIN) [Concomitant]
  3. LISINOPRIL(LISINOPRIL) [Concomitant]

REACTIONS (1)
  - Hypertension [None]
